FAERS Safety Report 6575448-X (Version None)
Quarter: 2010Q1

REPORT INFORMATION
  Report Type: 
  Country: None (occurrence: None)
  Receive Date: 20100209
  Receipt Date: 20100204
  Transmission Date: 20100710
  Serious: Yes (Other)
  Sender: FDA-Public Use
  Company Number: CN-JNJFOC-20100202510

PATIENT
  Age: 56 Year
  Sex: Male

DRUGS (1)
  1. SPORANOX [Suspect]
     Indication: CANDIDIASIS
     Route: 048

REACTIONS (2)
  - ANGINA PECTORIS [None]
  - INCREASED UPPER AIRWAY SECRETION [None]
